FAERS Safety Report 5531334-5 (Version None)
Quarter: 2007Q4

REPORT INFORMATION
  Report Type: 
  Country: None (occurrence: None)
  Receive Date: 20071201
  Receipt Date: 20071127
  Transmission Date: 20080405
  Serious: Yes (Other)
  Sender: FDA-Public Use
  Company Number: CA-ALLERGAN-0713021US

PATIENT
  Sex: Female

DRUGS (5)
  1. COMBIGAN [Suspect]
     Indication: DRUG USE FOR UNKNOWN INDICATION
  2. TRAZODONE HCL [Concomitant]
     Dosage: 100 MG, QHS
  3. ZYPREXA [Concomitant]
     Dosage: 5 MG, QAM
  4. EXELON [Concomitant]
     Dosage: 4.5 MG, BID
  5. PERIOT [Concomitant]
     Dosage: 200 MG, QD

REACTIONS (2)
  - BRADYCARDIA [None]
  - SYNCOPE [None]
